FAERS Safety Report 7206204-7 (Version None)
Quarter: 2011Q1

REPORT INFORMATION
  Report Type: 
  Country: None (occurrence: None)
  Receive Date: 20110103
  Receipt Date: 20101221
  Transmission Date: 20110831
  Serious: Yes (Death, Other)
  Sender: FDA-Public Use
  Company Number: US-ELI_LILLY_AND_COMPANY-US201011002234

PATIENT
  Sex: Male

DRUGS (1)
  1. FORTEO [Suspect]
     Dosage: 20 UG, DAILY (1/D)
     Dates: start: 20100901, end: 20101001

REACTIONS (4)
  - RESPIRATORY FAILURE [None]
  - URINE OUTPUT INCREASED [None]
  - PNEUMONIA ASPIRATION [None]
  - HOSPITALISATION [None]
